FAERS Safety Report 15401603 (Version 11)
Quarter: 2019Q3

REPORT INFORMATION
  Report Type: Report from Study
  Country: EG (occurrence: EG)
  Receive Date: 20180919
  Receipt Date: 20190823
  Transmission Date: 20191004
  Serious: Yes (Death, Other)
  Sender: FDA-Public Use
  Company Number: PHHY2018EG048279

PATIENT
  Age: 74 Year
  Sex: Female

DRUGS (3)
  1. VOTRIENT [Suspect]
     Active Substance: PAZOPANIB HYDROCHLORIDE
     Dosage: 600 OT, UNK
     Route: 048
     Dates: start: 20180531, end: 20180613
  2. VOTRIENT [Suspect]
     Active Substance: PAZOPANIB HYDROCHLORIDE
     Dosage: 200 OT, UNK
     Route: 048
     Dates: start: 20180614, end: 201811
  3. VOTRIENT [Suspect]
     Active Substance: PAZOPANIB HYDROCHLORIDE
     Indication: RENAL CELL CARCINOMA
     Dosage: 800 OT, UNK
     Route: 048
     Dates: start: 20180123, end: 20180310

REACTIONS (9)
  - Jaundice [Unknown]
  - Malignant neoplasm progression [Fatal]
  - Renal cell carcinoma [Fatal]
  - Transaminases increased [Recovered/Resolved]
  - Chromaturia [Unknown]
  - Liver injury [Unknown]
  - Blood bilirubin increased [Recovered/Resolved]
  - Pruritus [Unknown]
  - Hepatotoxicity [Recovered/Resolved]

NARRATIVE: CASE EVENT DATE: 20180310
